FAERS Safety Report 16407481 (Version 3)
Quarter: 2021Q1

REPORT INFORMATION
  Report Type: Report from Study
  Country: IL (occurrence: IL)
  Receive Date: 20190608
  Receipt Date: 20210120
  Transmission Date: 20210419
  Serious: Yes (Hospitalization)
  Sender: FDA-Public Use
  Company Number: PHHY2018IL063957

PATIENT
  Age: 69 Year
  Sex: Female

DRUGS (4)
  1. SANDOSTATIN LAR DEPOT [Suspect]
     Active Substance: OCTREOTIDE ACETATE
     Dosage: 30 MG, QMO
     Route: 030
  2. SANDOSTATIN LAR DEPOT [Suspect]
     Active Substance: OCTREOTIDE ACETATE
     Dosage: 30 MG, QMO
     Route: 030
     Dates: start: 20190825
  3. SANDOSTATIN LAR DEPOT [Suspect]
     Active Substance: OCTREOTIDE ACETATE
     Dosage: 30 MG, QMO
     Route: 030
     Dates: start: 20190729
  4. SANDOSTATIN LAR DEPOT [Suspect]
     Active Substance: OCTREOTIDE ACETATE
     Indication: NEUROENDOCRINE TUMOUR
     Dosage: 30 MG, QMO (INJECTION)
     Route: 030
     Dates: start: 20170423

REACTIONS (12)
  - Transient ischaemic attack [Recovered/Resolved]
  - Back pain [Recovering/Resolving]
  - Dysarthria [Recovered/Resolved]
  - Paraesthesia oral [Recovered/Resolved]
  - Carotid arteriosclerosis [Unknown]
  - Paraesthesia [Recovering/Resolving]
  - Injection site pain [Recovered/Resolved]
  - Dysarthria [Recovered/Resolved]
  - Dry skin [Not Recovered/Not Resolved]
  - Chest pain [Recovering/Resolving]
  - Transient ischaemic attack [Unknown]
  - Paraesthesia [Recovered/Resolved]

NARRATIVE: CASE EVENT DATE: 20190508
